FAERS Safety Report 9688225 (Version 1)
Quarter: 2013Q4

REPORT INFORMATION
  Report Type: Spontaneous
  Country: US (occurrence: None)
  Receive Date: 20131113
  Receipt Date: 20131113
  Transmission Date: 20140711
  Serious: Yes (Disabling)
  Sender: FDA-Public Use
  Company Number: None

PATIENT
  Age: 46 Year
  Sex: Female
  Weight: 80.74 kg

DRUGS (1)
  1. VICTOZA [Suspect]
     Indication: TYPE 2 DIABETES MELLITUS
     Dosage: 1,2 MG  ONCE DAILY  GIVEN INTO/UNDER THE SKIN
     Route: 058

REACTIONS (3)
  - Fatigue [None]
  - Dyspnoea [None]
  - Heart rate increased [None]
